FAERS Safety Report 5175208-0 (Version None)
Quarter: 2006Q4

REPORT INFORMATION
  Report Type: 
  Country: None (occurrence: None)
  Receive Date: 20061206
  Receipt Date: 20061120
  Transmission Date: 20070319
  Serious: Yes (Hospitalization)
  Sender: FDA-Public Use
  Company Number: DSA_29037_2006

PATIENT
  Age: 72 Year
  Sex: Female

DRUGS (4)
  1. ENALAPRIL MALEATE AND HYDROCHLOROTHIAZIDE [Suspect]
     Indication: HYPERTENSION
     Dosage: 1 DF Q DAY PO
     Route: 048
     Dates: end: 20061014
  2. ASPIRIN [Concomitant]
  3. LACIDIPINE [Concomitant]
  4. PRAVASTATIN [Concomitant]

REACTIONS (6)
  - BLOOD POTASSIUM DECREASED [None]
  - BLOOD PRESSURE SYSTOLIC INCREASED [None]
  - CONFUSIONAL STATE [None]
  - HYPONATRAEMIA [None]
  - MALAISE [None]
  - VOMITING [None]
